FAERS Safety Report 10035048 (Version 2)
Quarter: 2014Q2

REPORT INFORMATION
  Report Type: Spontaneous
  Country: US (occurrence: US)
  Receive Date: 20140325
  Receipt Date: 20140404
  Transmission Date: 20141212
  Serious: No
  Sender: FDA-Public Use
  Company Number: US-BAXTER-2014BAX014842

PATIENT
  Sex: Male

DRUGS (2)
  1. DIANEAL LOW CALCIUM [Suspect]
     Indication: RENAL FAILURE CHRONIC
     Route: 033
     Dates: start: 2013
  2. NITROGLYCERIN [Concomitant]
     Indication: DYSPNOEA
     Route: 048

REACTIONS (7)
  - Peritoneal dialysis complication [Recovering/Resolving]
  - Peripheral swelling [Recovering/Resolving]
  - Muscle rupture [Recovering/Resolving]
  - Sleep apnoea syndrome [Not Recovered/Not Resolved]
  - Abdominal distension [Unknown]
  - Constipation [Recovering/Resolving]
  - Dyspnoea [Recovering/Resolving]
